FAERS Safety Report 15369943 (Version 43)
Quarter: 2022Q2

REPORT INFORMATION
  Report Type: Spontaneous
  Country: CA (occurrence: CA)
  Receive Date: 20180911
  Receipt Date: 20220623
  Transmission Date: 20220721
  Serious: Yes (Hospitalization, Other)
  Sender: FDA-Public Use
  Company Number: CA-CELLTRION INC.-2018CA021813

PATIENT

DRUGS (54)
  1. INFLECTRA [Suspect]
     Active Substance: INFLIXIMAB-DYYB
     Indication: Crohn^s disease
     Dosage: 170 MG, WEEK 0, 2, 6 THEN EVERY 8 WEEKS (WEEK 0 LOADING DOSE)
     Route: 042
     Dates: start: 20180423, end: 20180423
  2. INFLECTRA [Suspect]
     Active Substance: INFLIXIMAB-DYYB
     Dosage: 170 MG, WEEK 0, 2, 6 THEN EVERY 8 WEEKS (WEEK 2 LOADING DOSE)
     Route: 042
     Dates: start: 20180507, end: 20180507
  3. INFLECTRA [Suspect]
     Active Substance: INFLIXIMAB-DYYB
     Dosage: 170 MG, WEEK 0, 2, 6 THEN EVERY 8 WEEKS (WEEK 6 LOADING DOSE)
     Route: 042
     Dates: start: 20180606, end: 20180606
  4. INFLECTRA [Suspect]
     Active Substance: INFLIXIMAB-DYYB
     Dosage: 170 MG, EVERY 8 WEEKS
     Route: 042
     Dates: start: 20180801, end: 20180801
  5. INFLECTRA [Suspect]
     Active Substance: INFLIXIMAB-DYYB
     Dosage: 270 MG, EVERY 8 WEEKS
     Route: 042
     Dates: start: 20180801
  6. INFLECTRA [Suspect]
     Active Substance: INFLIXIMAB-DYYB
     Dosage: 400 MG, EVERY 4 WEEKS
     Route: 042
     Dates: start: 20180825
  7. INFLECTRA [Suspect]
     Active Substance: INFLIXIMAB-DYYB
     Dosage: 200 MG, EVERY 4 WEEKS
     Route: 042
     Dates: start: 20180828, end: 20180926
  8. INFLECTRA [Suspect]
     Active Substance: INFLIXIMAB-DYYB
     Dosage: 500 MG, EVERY 4 WEEKS
     Route: 042
     Dates: start: 20181004, end: 20190121
  9. INFLECTRA [Suspect]
     Active Substance: INFLIXIMAB-DYYB
     Dosage: 500 MG, EVERY 4 WEEKS
     Route: 042
     Dates: start: 20181029
  10. INFLECTRA [Suspect]
     Active Substance: INFLIXIMAB-DYYB
     Dosage: 500 MG, EVERY 4 WEEKS
     Route: 042
     Dates: start: 20181126
  11. INFLECTRA [Suspect]
     Active Substance: INFLIXIMAB-DYYB
     Dosage: 500 MG, EVERY 4 WEEKS
     Route: 042
     Dates: start: 20181224
  12. INFLECTRA [Suspect]
     Active Substance: INFLIXIMAB-DYYB
     Dosage: 500 MG, EVERY 4 WEEKS
     Route: 042
     Dates: start: 20190121
  13. INFLECTRA [Suspect]
     Active Substance: INFLIXIMAB-DYYB
     Dosage: 350 MG, EVERY 4 WEEKS
     Route: 042
     Dates: start: 20190215, end: 20190415
  14. INFLECTRA [Suspect]
     Active Substance: INFLIXIMAB-DYYB
     Dosage: 350 MG, EVERY 4 WEEKS
     Route: 042
     Dates: start: 20190318
  15. INFLECTRA [Suspect]
     Active Substance: INFLIXIMAB-DYYB
     Dosage: 350 MG, EVERY 4 WEEKS
     Route: 042
     Dates: start: 20190415
  16. INFLECTRA [Suspect]
     Active Substance: INFLIXIMAB-DYYB
     Dosage: 250 MG, EVERY 4 WEEKS
     Route: 042
     Dates: start: 20190513, end: 20190513
  17. INFLECTRA [Suspect]
     Active Substance: INFLIXIMAB-DYYB
     Dosage: 350 MG, EVERY 4 WEEKS
     Route: 042
     Dates: start: 20190618, end: 20191003
  18. INFLECTRA [Suspect]
     Active Substance: INFLIXIMAB-DYYB
     Dosage: 350 MG, EVERY 4 WEEKS
     Route: 042
     Dates: start: 20190715
  19. INFLECTRA [Suspect]
     Active Substance: INFLIXIMAB-DYYB
     Dosage: 350 MG, EVERY 4 WEEKS
     Route: 042
     Dates: start: 20190813
  20. INFLECTRA [Suspect]
     Active Substance: INFLIXIMAB-DYYB
     Dosage: 350 MG, EVERY 4 WEEKS
     Route: 042
     Dates: start: 20190905
  21. INFLECTRA [Suspect]
     Active Substance: INFLIXIMAB-DYYB
     Dosage: 350 MG, EVERY 4 WEEKS
     Route: 042
     Dates: start: 20191003
  22. INFLECTRA [Suspect]
     Active Substance: INFLIXIMAB-DYYB
     Dosage: 350 MG, EVERY 4 WEEKS
     Route: 042
     Dates: start: 20191003
  23. INFLECTRA [Suspect]
     Active Substance: INFLIXIMAB-DYYB
     Dosage: 350 MG (RX: 200 MG (5 MG/KG) EVERY 6 WEEKS)
     Route: 042
     Dates: start: 20191113
  24. INFLECTRA [Suspect]
     Active Substance: INFLIXIMAB-DYYB
     Dosage: 200 MG, EVERY 6 WEEKS
     Route: 042
     Dates: start: 20191113
  25. INFLECTRA [Suspect]
     Active Substance: INFLIXIMAB-DYYB
     Dosage: 200 MG (5 MG/KG) EVERY 6 WEEKS
     Route: 042
     Dates: start: 20191223
  26. INFLECTRA [Suspect]
     Active Substance: INFLIXIMAB-DYYB
     Dosage: 200 MG (5 MG/KG) EVERY 6 WEEKS
     Route: 042
     Dates: start: 20200427
  27. INFLECTRA [Suspect]
     Active Substance: INFLIXIMAB-DYYB
     Dosage: 200 MG (5 MG/KG) EVERY 6 WEEKS
     Route: 042
     Dates: start: 20200608
  28. INFLECTRA [Suspect]
     Active Substance: INFLIXIMAB-DYYB
     Dosage: 200 MG (5 MG/KG) EVERY 6 WEEKS
     Route: 042
     Dates: start: 20200720
  29. INFLECTRA [Suspect]
     Active Substance: INFLIXIMAB-DYYB
     Dosage: 200 MG (5 MG/KG) EVERY 6 WEEKS
     Route: 042
     Dates: start: 20200831
  30. INFLECTRA [Suspect]
     Active Substance: INFLIXIMAB-DYYB
     Dosage: 200 MG (5 MG/KG) EVERY 6 WEEKS
     Route: 042
     Dates: start: 20201022
  31. INFLECTRA [Suspect]
     Active Substance: INFLIXIMAB-DYYB
     Dosage: 200 MG (5 MG/KG) EVERY 6 WEEKS
     Route: 042
     Dates: start: 20201205
  32. INFLECTRA [Suspect]
     Active Substance: INFLIXIMAB-DYYB
     Dosage: 200 MG (5 MG/KG) EVERY 6 WEEKS
     Route: 042
     Dates: start: 20210116
  33. INFLECTRA [Suspect]
     Active Substance: INFLIXIMAB-DYYB
     Dosage: 200 MG (5 MG/KG) EVERY 6 WEEKS
     Route: 042
     Dates: start: 20210226
  34. INFLECTRA [Suspect]
     Active Substance: INFLIXIMAB-DYYB
     Dosage: 200 MG (5 MG/KG) EVERY 6 WEEKS
     Route: 042
     Dates: start: 20210428
  35. INFLECTRA [Suspect]
     Active Substance: INFLIXIMAB-DYYB
     Dosage: 200 MG (5 MG/KG) EVERY 6 WEEKS
     Route: 042
     Dates: start: 20210602
  36. INFLECTRA [Suspect]
     Active Substance: INFLIXIMAB-DYYB
     Dosage: 200 MG (5 MG/KG) EVERY 6 WEEKS
     Route: 042
     Dates: start: 20210712
  37. INFLECTRA [Suspect]
     Active Substance: INFLIXIMAB-DYYB
     Dosage: 200 MG (5 MG/KG) EVERY 6 WEEKS
     Route: 042
     Dates: start: 20210830
  38. INFLECTRA [Suspect]
     Active Substance: INFLIXIMAB-DYYB
     Dosage: 200 MG (5 MG/KG) EVERY 6 WEEKS
     Route: 042
     Dates: start: 20211014
  39. INFLECTRA [Suspect]
     Active Substance: INFLIXIMAB-DYYB
     Dosage: 200 MG (5 MG/KG) EVERY 6 WEEKS
     Route: 042
     Dates: start: 20211201
  40. INFLECTRA [Suspect]
     Active Substance: INFLIXIMAB-DYYB
     Dosage: 200 MG (5 MG/KG) EVERY 6 WEEKS
     Route: 042
     Dates: start: 20220120
  41. INFLECTRA [Suspect]
     Active Substance: INFLIXIMAB-DYYB
     Dosage: 200 MG (5 MG/KG) EVERY 6 WEEKS
     Route: 042
     Dates: start: 20220120
  42. INFLECTRA [Suspect]
     Active Substance: INFLIXIMAB-DYYB
     Dosage: 200 MG (5 MG/KG) EVERY 6 WEEKS
     Route: 042
     Dates: start: 20220317
  43. INFLECTRA [Suspect]
     Active Substance: INFLIXIMAB-DYYB
     Dosage: 200 MG (5 MG/KG) EVERY 6 WEEKS
     Route: 042
     Dates: start: 20220502
  44. INFLECTRA [Suspect]
     Active Substance: INFLIXIMAB-DYYB
     Dosage: 200 MG (5 MG/KG) EVERY 6 WEEKS
     Route: 042
     Dates: start: 20220502
  45. INFLECTRA [Suspect]
     Active Substance: INFLIXIMAB-DYYB
     Dosage: 200 MG (5 MG/KG) EVERY 6 WEEKS
     Route: 042
     Dates: start: 20220613
  46. INFLECTRA [Suspect]
     Active Substance: INFLIXIMAB-DYYB
     Dosage: UNK
     Route: 042
  47. IMURAN [Concomitant]
     Active Substance: AZATHIOPRINE
     Dosage: 125 MG, 1X/DAY
     Route: 048
     Dates: start: 20181202
  48. METHYLPREDNISOLONE [Concomitant]
     Active Substance: METHYLPREDNISOLONE
     Dosage: 30 MG, 2X/DAY
     Route: 042
  49. METRONIDAZOLE [Concomitant]
     Active Substance: METRONIDAZOLE
     Dosage: 500 MG, 3X/DAY
     Route: 048
  50. PREDNISONE [Concomitant]
     Active Substance: PREDNISONE
     Dosage: 15 MG, 1X/DAY
     Route: 048
  51. PREDNISONE [Concomitant]
     Active Substance: PREDNISONE
     Dosage: 40 MG, DAILY FOR 2 WEEKS, THEN TAPER BY 5 MG PER WEEK
  52. PREDNISONE [Concomitant]
     Active Substance: PREDNISONE
     Dosage: 15 MG, 1X/DAY
     Route: 048
     Dates: start: 20181017
  53. VALGANCICLOVIR [Concomitant]
     Active Substance: VALGANCICLOVIR
     Dosage: 900 MG, 2X/DAY FOR 2 WEEKS
     Dates: start: 2018
  54. VALGANCICLOVIR [Concomitant]
     Active Substance: VALGANCICLOVIR
     Dosage: 450 MG, 2X/DAY
     Route: 048
     Dates: start: 20181017

REACTIONS (16)
  - Condition aggravated [Not Recovered/Not Resolved]
  - Haematochezia [Unknown]
  - Off label use [Unknown]
  - Off label use [Unknown]
  - Off label use [Unknown]
  - Intentional product use issue [Unknown]
  - Inappropriate schedule of product administration [Unknown]
  - Incorrect dose administered [Unknown]
  - Blood pressure decreased [Not Recovered/Not Resolved]
  - Blood pressure fluctuation [Unknown]
  - Weight decreased [Not Recovered/Not Resolved]
  - Weight increased [Unknown]
  - Drug level below therapeutic [Not Recovered/Not Resolved]
  - Drug level above therapeutic [Unknown]
  - Pruritus [Unknown]
  - Malaise [Recovered/Resolved]

NARRATIVE: CASE EVENT DATE: 20180801
